FAERS Safety Report 13340388 (Version 2)
Quarter: 2017Q2

REPORT INFORMATION
  Report Type: Spontaneous
  Country: US (occurrence: US)
  Receive Date: 20170316
  Receipt Date: 20170420
  Transmission Date: 20170830
  Serious: No
  Sender: FDA-Public Use
  Company Number: US-PFIZER INC-2017110774

PATIENT
  Sex: Male

DRUGS (1)
  1. CHANTIX [Suspect]
     Active Substance: VARENICLINE TARTRATE
     Dosage: UNK

REACTIONS (6)
  - Drug ineffective [Unknown]
  - Insomnia [Unknown]
  - Thinking abnormal [Unknown]
  - Dry mouth [Unknown]
  - Nightmare [Unknown]
  - Abnormal dreams [Unknown]
